FAERS Safety Report 6901971-1 (Version None)
Quarter: 2010Q3

REPORT INFORMATION
  Report Type: 
  Country: None (occurrence: None)
  Receive Date: 20100803
  Receipt Date: 20080401
  Transmission Date: 20110219
  Serious: No
  Sender: FDA-Public Use
  Company Number: US-PFIZER INC-2008029241

PATIENT
  Sex: Male
  Weight: 90.7 kg

DRUGS (6)
  1. LYRICA [Suspect]
     Indication: FIBROMYALGIA
     Dates: start: 20080301
  2. PROSCAR [Concomitant]
  3. TAMSULOSIN HYDROCHLORIDE [Concomitant]
  4. PRIMIDONE [Concomitant]
  5. MONTELUKAST SODIUM [Concomitant]
  6. PRILOSEC [Concomitant]

REACTIONS (3)
  - DEPRESSION [None]
  - FEAR [None]
  - SOMNOLENCE [None]
